FAERS Safety Report 10736684 (Version 4)
Quarter: 2015Q2

REPORT INFORMATION
  Report Type: Report from Study
  Country: ES (occurrence: ES)
  Receive Date: 20150126
  Receipt Date: 20150414
  Transmission Date: 20150821
  Serious: Yes (Hospitalization, Other)
  Sender: FDA-Public Use
  Company Number: ES-CELGENE-ESP-2014125668

PATIENT
  Age: 48 Year
  Sex: Male
  Weight: 68 kg

DRUGS (14)
  1. NOLOTIL [Concomitant]
     Active Substance: METAMIZOLE
     Indication: PRODUCT USED FOR UNKNOWN INDICATION
     Dosage: 600 MILLIGRAM
     Route: 041
     Dates: start: 20141217
  2. DEXAMETHASONE. [Suspect]
     Active Substance: DEXAMETHASONE
     Indication: PLASMA CELL LEUKAEMIA
     Route: 041
     Dates: start: 20141217
  3. CLEXANE [Concomitant]
     Active Substance: ENOXAPARIN SODIUM
     Indication: PRODUCT USED FOR UNKNOWN INDICATION
     Route: 058
     Dates: start: 20141219
  4. BROMAZEPAN [Concomitant]
     Indication: PRODUCT USED FOR UNKNOWN INDICATION
     Route: 048
     Dates: start: 20141216
  5. KONAKION [Concomitant]
     Active Substance: PHYTONADIONE
     Indication: PRODUCT USED FOR UNKNOWN INDICATION
     Route: 048
     Dates: start: 20141215
  6. OMEPRAZOLE NORMON [Concomitant]
     Indication: PRODUCT USED FOR UNKNOWN INDICATION
     Dosage: 2 GRAM
     Route: 048
     Dates: start: 20141215
  7. ZOVIRAX [Concomitant]
     Active Substance: ACYCLOVIR
     Indication: PRODUCT USED FOR UNKNOWN INDICATION
     Dosage: 2 GRAM
     Route: 048
     Dates: start: 20141215
  8. REVLIMID [Suspect]
     Active Substance: LENALIDOMIDE
     Indication: PLASMA CELL LEUKAEMIA
     Dosage: 25 MILLIGRAM
     Route: 048
     Dates: start: 20141218
  9. DUPHALAC SOBRES [Concomitant]
     Indication: PRODUCT USED FOR UNKNOWN INDICATION
     Route: 048
     Dates: start: 20141216
  10. PERFALGAN [Concomitant]
     Active Substance: ACETAMINOPHEN
     Indication: PRODUCT USED FOR UNKNOWN INDICATION
     Dosage: 20 MILLIGRAM
     Route: 041
     Dates: start: 20141215
  11. SEPTRIM FORTE [Concomitant]
     Indication: PRODUCT USED FOR UNKNOWN INDICATION
     Dosage: 800/160 MG
     Route: 048
     Dates: start: 20141215
  12. DEXAMETHASONE. [Suspect]
     Active Substance: DEXAMETHASONE
     Dosage: 10 MILLIGRAM
     Route: 048
  13. VELCADE [Suspect]
     Active Substance: BORTEZOMIB
     Indication: PLASMA CELL LEUKAEMIA
     Route: 058
     Dates: start: 20141218
  14. PRIMPERAN [Concomitant]
     Active Substance: METOCLOPRAMIDE HYDROCHLORIDE
     Indication: PRODUCT USED FOR UNKNOWN INDICATION
     Dosage: 100 MILLIGRAM
     Route: 041
     Dates: start: 20141216

REACTIONS (4)
  - Respiratory failure [Recovered/Resolved]
  - Pyrexia [Recovered/Resolved]
  - Atrial fibrillation [Recovered/Resolved]
  - Toxic skin eruption [Recovered/Resolved]

NARRATIVE: CASE EVENT DATE: 20141221
